FAERS Safety Report 5471648-0 (Version None)
Quarter: 2007Q3

REPORT INFORMATION
  Report Type: 
  Country: None (occurrence: None)
  Receive Date: 20070928
  Receipt Date: 20070301
  Transmission Date: 20080115
  Serious: No
  Sender: FDA-Public Use
  Company Number: US-BRISTOL-MYERS SQUIBB COMPANY-13696711

PATIENT
  Age: 45 Year
  Sex: Male
  Weight: 76 kg

DRUGS (4)
  1. DEFINITY [Suspect]
     Indication: ECHOCARDIOGRAM
     Dosage: DEFINITY DILUTED 8.7CC NS.
  2. PLAVIX [Concomitant]
  3. TOPROL-XL [Concomitant]
  4. ASPIRIN [Concomitant]

REACTIONS (2)
  - BACK PAIN [None]
  - NAUSEA [None]
